FAERS Safety Report 20626253 (Version 1)
Quarter: 2022Q1

REPORT INFORMATION
  Report Type: Spontaneous
  Country: US (occurrence: None)
  Receive Date: 20220323
  Receipt Date: 20220323
  Transmission Date: 20220423
  Serious: No
  Sender: FDA-Public Use
  Company Number: US-ROCHE-2817643

PATIENT
  Sex: Male

DRUGS (19)
  1. ERIVEDGE [Suspect]
     Active Substance: VISMODEGIB
     Indication: Basal cell carcinoma
     Route: 048
     Dates: start: 20150417, end: 202103
  2. ELIQUIS [Concomitant]
     Active Substance: APIXABAN
     Dosage: 5 MG
  3. GABAPENTIN [Concomitant]
     Active Substance: GABAPENTIN
     Dosage: CAPSULE 300 MG
  4. IPRATROPIUM [Concomitant]
     Active Substance: IPRATROPIUM
  5. ATORVASTATIN [Concomitant]
     Active Substance: ATORVASTATIN
     Dosage: 80 MG
  6. VITAMIN D [Concomitant]
     Active Substance: VITAMIN D NOS
     Dosage: 50000 UNIT
  7. METFORMIN HYDROCHLORIDE [Concomitant]
     Active Substance: METFORMIN HYDROCHLORIDE
  8. DIAZEPAM [Concomitant]
     Active Substance: DIAZEPAM
     Dosage: 2 MG
     Route: 065
  9. DOXAZOSIN [Concomitant]
     Active Substance: DOXAZOSIN MESYLATE
     Dosage: 8 MG
  10. THEOPHYLLINE [Concomitant]
     Active Substance: THEOPHYLLINE
     Dosage: 200 MG TD
  11. LEVOTHYROXINE [Concomitant]
     Active Substance: LEVOTHYROXINE
     Dosage: 50 MCG
  12. BUPROPION [Concomitant]
     Active Substance: BUPROPION
     Dosage: 200 MG SR
  13. RANITIDINE [Concomitant]
     Active Substance: RANITIDINE
     Dosage: 300 MG
  14. DULOXETINE [Concomitant]
     Active Substance: DULOXETINE
     Dosage: CAP 20 MG
  15. OMEPRAZOLE [Concomitant]
     Active Substance: OMEPRAZOLE
     Dosage: CAP 20 MG
  16. RISPERIDONE [Concomitant]
     Active Substance: RISPERIDONE
  17. MOXIFLOXACIN [Concomitant]
     Active Substance: MOXIFLOXACIN
     Dosage: 400  MG
  18. LISINOPRIL [Concomitant]
     Active Substance: LISINOPRIL
     Dosage: 10 MG
  19. PREDNISONE [Concomitant]
     Active Substance: PREDNISONE
     Dosage: 140 MG

REACTIONS (1)
  - Liver disorder [Not Recovered/Not Resolved]
